FAERS Safety Report 5696709-2 (Version None)
Quarter: 2008Q2

REPORT INFORMATION
  Report Type: 
  Country: None (occurrence: None)
  Receive Date: 20080408
  Receipt Date: 20080402
  Transmission Date: 20081010
  Serious: Yes (Other)
  Sender: FDA-Public Use
  Company Number: US-MERCK-0804USA01112

PATIENT
  Age: 47 Year
  Sex: Female

DRUGS (6)
  1. SINGULAIR [Suspect]
     Indication: ASTHMA
     Route: 048
     Dates: start: 20080209, end: 20080402
  2. SINGULAIR [Suspect]
     Indication: HYPERSENSITIVITY
     Route: 048
     Dates: start: 20080209, end: 20080402
  3. WELLBUTRIN XL [Suspect]
     Route: 065
  4. TOPAMAX [Concomitant]
     Route: 065
  5. ADVAIR HFA [Concomitant]
     Route: 065
  6. ALBUTEROL [Concomitant]
     Route: 065

REACTIONS (3)
  - DRUG INEFFECTIVE [None]
  - MAJOR DEPRESSION [None]
  - SUICIDAL IDEATION [None]
